FAERS Safety Report 7632628-X (Version None)
Quarter: 2011Q3

REPORT INFORMATION
  Report Type: 
  Country: None (occurrence: None)
  Receive Date: 20110725
  Receipt Date: 20101103
  Transmission Date: 20111222
  Serious: No
  Sender: FDA-Public Use
  Company Number: US-BRISTOL-MYERS SQUIBB COMPANY-15366602

PATIENT
  Age: 75 Year
  Sex: Male
  Weight: 113 kg

DRUGS (7)
  1. HYZAAR [Concomitant]
  2. LASIX [Concomitant]
  3. NORVASC [Concomitant]
  4. POTASSIUM [Concomitant]
  5. COUMADIN [Suspect]
     Dosage: 1DF:7.5 MG SIX DAYS A WEEK AND 10MG ONE DAY A WEEK
  6. TERAZOSIN HCL [Concomitant]
  7. OMEPRAZOLE [Concomitant]

REACTIONS (1)
  - INTERNATIONAL NORMALISED RATIO INCREASED [None]
